FAERS Safety Report 14485526 (Version 1)
Quarter: 2018Q1

REPORT INFORMATION
  Report Type: Spontaneous
  Country: US (occurrence: US)
  Receive Date: 20180202
  Receipt Date: 20180202
  Transmission Date: 20180509
  Serious: No
  Sender: FDA-Public Use
  Company Number: None

PATIENT

DRUGS (2)
  1. TOPOSAR [Suspect]
     Active Substance: ETOPOSIDE
  2. IRINOTECAN [Suspect]
     Active Substance: IRINOTECAN

REACTIONS (1)
  - Product packaging issue [None]
